FAERS Safety Report 17771501 (Version 1)
Quarter: 2020Q2

REPORT INFORMATION
  Report Type: Spontaneous
  Country: US (occurrence: US)
  Receive Date: 20200512
  Receipt Date: 20200512
  Transmission Date: 20200714
  Serious: Yes (Other)
  Sender: FDA-Public Use
  Company Number: US-TEVA-2020-US-1235107

PATIENT

DRUGS (1)
  1. DISOPYRAMIDE 100MG [Suspect]
     Active Substance: DISOPYRAMIDE
     Route: 065

REACTIONS (2)
  - Urinary hesitation [Not Recovered/Not Resolved]
  - Kidney infection [Not Recovered/Not Resolved]
